FAERS Safety Report 4517455-4 (Version None)
Quarter: 2004Q4

REPORT INFORMATION
  Report Type: 
  Country: None (occurrence: None)
  Receive Date: 20041022
  Receipt Date: 20040916
  Transmission Date: 20050328
  Serious: Yes (Other)
  Sender: FDA-Public Use
  Company Number: 2004049236

PATIENT
  Age: 49 Year
  Sex: Female

DRUGS (6)
  1. RELPAX [Suspect]
     Indication: MIGRAINE
     Dosage: 40 MG, ORAL
     Route: 048
     Dates: start: 20040101, end: 20040712
  2. MULTIVITAMINS (ASCORBIC ACID, ERGOCALCIFEROL, FOLIC ACID, NOCITINAMIDE [Concomitant]
  3. ALL OTHER THERAPEUTIC PRODUCTS (ALL OTHER THERAPEUTIC PRODUCTS) [Concomitant]
  4. IODINE (IODINE) [Concomitant]
  5. IPRATROPIRUM BROMIDE (IPRATROPIUM BROMIDE) [Concomitant]
  6. ALMOTRIPTAN MALATE (ALMOTRIPTAN MALATE) [Concomitant]

REACTIONS (4)
  - CONTUSION [None]
  - RASH GENERALISED [None]
  - VEIN DISCOLOURATION [None]
  - WEIGHT DECREASED [None]
